FAERS Safety Report 9516583 (Version 1)
Quarter: 2013Q1

REPORT INFORMATION
  Report Type: Spontaneous
  Country: US (occurrence: None)
  Receive Date: 20130305
  Receipt Date: 20130305
  Transmission Date: 20140127
  Serious: Yes (Hospitalization, Other)
  Sender: FDA-Public Use
  Company Number: 163-21880-12011362

PATIENT
  Age: 57 Year
  Sex: Female

DRUGS (14)
  1. REVLIMID (LENALIDOMIDE) (25 MILLIGRAM, CAPSULES) [Suspect]
     Indication: PLASMA CELL MYELOMA
     Dosage: 25 MG, 1 IN 1 D, PO
     Route: 048
     Dates: start: 201009
  2. PLAVIX (CLOPIDOGREL SULFATE) [Concomitant]
  3. CRESTOR (ROSUVASTATIN) [Concomitant]
  4. ACYCLOVIR (ACICLOVIR) (ACICLOVIR) [Concomitant]
  5. FLUCONAZOLE (FLUCONAZOLE) [Concomitant]
  6. SULFAMETHOXAZOLE (SULFAMETHOXAZOLE) [Concomitant]
  7. PROTONIX [Concomitant]
  8. CALCIUM + VITAMIN D (CALCIUM + VIT D) [Concomitant]
  9. POTASSIUM (POTASSIUM) [Concomitant]
  10. MAGNESIUM (MAGNESIUM) [Concomitant]
  11. VELCADE (BORTEZOMIB) [Concomitant]
  12. DEX (DEXTROMETHORPHAN HYDROBROMIDE) [Concomitant]
  13. ZOMETA (ZOLEDRONIC ACID) [Concomitant]
  14. ZOFRAN (ONDANSETRON HYDROCHLORIDE) [Concomitant]

REACTIONS (3)
  - Transient ischaemic attack [None]
  - Platelet count decreased [None]
  - Embolism [None]
